FAERS Safety Report 17192632 (Version 1)
Quarter: 2019Q4

REPORT INFORMATION
  Report Type: Report from Study
  Country: DE (occurrence: DE)
  Receive Date: 20191223
  Receipt Date: 20191223
  Transmission Date: 20200122
  Serious: Yes (Congenital Anomaly)
  Sender: FDA-Public Use
  Company Number: DE-TEVA-2019-DE-1156766

PATIENT
  Sex: Female

DRUGS (32)
  1. PARACETAMOL [Suspect]
     Active Substance: ACETAMINOPHEN
     Indication: PAIN
     Dosage: BETWEEN GESTATIONAL WEEKS 7+2 AND 10
     Route: 064
  2. RANITIDINE. [Suspect]
     Active Substance: RANITIDINE
     Dosage: DURING THE FIRST TRIMESTER
     Route: 064
  3. GLYCERYL TRINITRATE [Suspect]
     Active Substance: NITROGLYCERIN
     Dosage: DURING THE FIRST TRIMESTER
     Route: 064
  4. ESOMEPRAZOLE. [Suspect]
     Active Substance: ESOMEPRAZOLE MAGNESIUM
     Dosage: DURING THE FIRST TRIMESTER
     Route: 064
  5. NIMODIPINE. [Suspect]
     Active Substance: NIMODIPINE
     Dosage: DURING THE FIRST TRIMESTER
     Route: 064
  6. DIHYDRALAZINE [Suspect]
     Active Substance: DIHYDRALAZINE
     Dosage: DURING THE FIRST TRIMESTER
     Route: 064
  7. CLONIDINE. [Suspect]
     Active Substance: CLONIDINE
     Dosage: DURING THE FIRST TRIMESTER
     Route: 064
  8. COTRIMOXACOL [Suspect]
     Active Substance: SULFAMETHOXAZOLE\TRIMETHOPRIM
     Dosage: DURING THE FIRST TRIMESTER
     Route: 064
  9. DESMOPRESSIN [Suspect]
     Active Substance: DESMOPRESSIN
     Dosage: DURING THE FIRST TRIMESTER
     Route: 064
  10. HEPARIN [Suspect]
     Active Substance: HEPARIN SODIUM
     Dosage: DURING THE FIRST TRIMESTER
     Route: 064
  11. CEFUROXIME. [Suspect]
     Active Substance: CEFUROXIME
     Dosage: DURING THE FIRST TRIMESTER
     Route: 064
  12. CEFTAZIDIME. [Suspect]
     Active Substance: CEFTAZIDIME
     Dosage: DURING THE FIRST TRIMESTER
     Route: 064
  13. NIFEDIPINE. [Suspect]
     Active Substance: NIFEDIPINE
     Dosage: DURING THE FIRST TRIMESTER
     Route: 064
  14. MIDAZOLAM [Suspect]
     Active Substance: MIDAZOLAM HYDROCHLORIDE
     Dosage: DURING THE FIRST TRIMESTER
     Route: 064
  15. PROPOFOL. [Suspect]
     Active Substance: PROPOFOL
     Dosage: DURING THE FIRST TRIMESTER
     Route: 064
  16. REMIFENTANIL [Suspect]
     Active Substance: REMIFENTANIL
     Dosage: DURING THE FIRST TRIMESTER
     Route: 064
  17. METAMIZOLE [Suspect]
     Active Substance: METAMIZOLE
     Dosage: DURING THE FIRST TRIMESTER
     Route: 064
  18. CEFOTAXIME [Suspect]
     Active Substance: CEFOTAXIME SODIUM
     Dosage: DURING THE FIRST TRIMESTER
     Route: 064
  19. SUXAMETHONIUM [Suspect]
     Active Substance: SUCCINYLCHOLINE
     Dosage: DURING THE FIRST TRIMESTER
     Route: 064
  20. ATRACURIUM [Suspect]
     Active Substance: ATRACURIUM
     Dosage: DURING THE FIRST TRIMESTER
     Route: 064
  21. ENOXAPARIN [Suspect]
     Active Substance: ENOXAPARIN
     Dosage: ADDITIONAL INFO: DURING THE FIRST TRIMESTER
     Route: 064
  22. IOHEXOL [Suspect]
     Active Substance: IOHEXOL
     Dosage: DURING THE FIRST TRIMESTER
     Route: 064
  23. PIRITRAMIDE [Suspect]
     Active Substance: PIRITRAMIDE
     Dosage: DURING THE FIRST TRIMESTER
     Route: 064
  24. NOREPINEPHRINE. [Suspect]
     Active Substance: NOREPINEPHRINE
     Dosage: DURING THE FIRST TRIMESTER
     Route: 064
  25. METOPROLOL. [Suspect]
     Active Substance: METOPROLOL
     Dosage: DURING THE FIRST TRIMESTER
     Route: 064
  26. METOCLOPRAMIDE. [Suspect]
     Active Substance: METOCLOPRAMIDE
     Dosage: DURING THE FIRST TRIMESTER
     Route: 064
  27. LORAZEPAM. [Suspect]
     Active Substance: LORAZEPAM
     Dosage: DURING THE FIRST TRIMESTER
     Route: 064
  28. SUFENTANIL [Suspect]
     Active Substance: SUFENTANIL
     Dosage: DURING THE FIRST TRIMESTER
     Route: 064
  29. SIMVASTATIN. [Suspect]
     Active Substance: SIMVASTATIN
     Dosage: DURING THE FIRST TRIMESTER
     Route: 064
  30. URAPIDIL [Suspect]
     Active Substance: URAPIDIL
     Dosage: DURING THE FIRST TRIMESTER
     Route: 064
  31. BETAMETHASONE. [Suspect]
     Active Substance: BETAMETHASONE
     Dosage: ADDITIONAL INFO: DURING THE SECOND TRIMESTER
     Route: 064
  32. METHYLDOPA. [Suspect]
     Active Substance: METHYLDOPA
     Dosage: ADDITIONAL INFO: DURING ALL TRIMESTERS
     Route: 064

REACTIONS (2)
  - Patent ductus arteriosus [Recovered/Resolved]
  - Foetal exposure during pregnancy [Unknown]
